FAERS Safety Report 4867537-2 (Version None)
Quarter: 2005Q4

REPORT INFORMATION
  Report Type: 
  Country: None (occurrence: None)
  Receive Date: 20051222
  Receipt Date: 20051214
  Transmission Date: 20060501
  Serious: Yes (Death, Life-Threatening, Hospitalization)
  Sender: FDA-Public Use
  Company Number: HQWYE351509SEP05

PATIENT
  Age: 73 Year
  Sex: Female
  Weight: 63.92 kg

DRUGS (2)
  1. MYLOTARG [Suspect]
     Indication: ACUTE MYELOID LEUKAEMIA
     Dosage: 1 SINGLE 9 MG DOSE, INTRAVENOUS; SEE IMAGE
     Route: 042
     Dates: start: 20050727, end: 20050727
  2. MYLOTARG [Suspect]
     Indication: ACUTE MYELOID LEUKAEMIA
     Dosage: 1 SINGLE 9 MG DOSE, INTRAVENOUS; SEE IMAGE
     Route: 042
     Dates: start: 20050810, end: 20050810

REACTIONS (4)
  - ACUTE MYELOID LEUKAEMIA [None]
  - FEBRILE NEUTROPENIA [None]
  - MALIGNANT NEOPLASM PROGRESSION [None]
  - PLATELET COUNT DECREASED [None]
